FAERS Safety Report 4345503-3 (Version None)
Quarter: 2004Q2

REPORT INFORMATION
  Report Type: 
  Country: None (occurrence: None)
  Receive Date: 20040416
  Receipt Date: 20040402
  Transmission Date: 20050107
  Serious: Yes (Hospitalization, Other)
  Sender: FDA-Public Use
  Company Number: RB-602-2004

PATIENT
  Age: 35 Year
  Sex: Male

DRUGS (1)
  1. BUPRENORPHINE HYDROCHLORIDE [Suspect]
     Indication: DRUG DEPENDENCE
     Dosage: 16 MG
     Route: 048
     Dates: start: 20040301

REACTIONS (5)
  - ACUTE PSYCHOSIS [None]
  - AGGRESSION [None]
  - CONFUSIONAL STATE [None]
  - HALLUCINATION [None]
  - ILLUSION [None]
